FAERS Safety Report 7040467-6 (Version None)
Quarter: 2010Q4

REPORT INFORMATION
  Report Type: 
  Country: None (occurrence: None)
  Receive Date: 20101012
  Receipt Date: 20101001
  Transmission Date: 20110411
  Serious: Yes (Other)
  Sender: FDA-Public Use
  Company Number: ZA-ABBOTT-10P-143-0674868-00

PATIENT
  Sex: Female
  Weight: 9.43 kg

DRUGS (5)
  1. KALETRA [Suspect]
     Indication: HIV INFECTION
     Dosage: 192/48MG,DAILY, 80/20MG PER ML:1.2ML BD
     Route: 048
     Dates: start: 20100101
  2. ALUVIA TABLETS [Suspect]
     Indication: DRUG EXPOSURE DURING PREGNANCY
     Route: 064
  3. AZT [Suspect]
     Indication: DRUG EXPOSURE DURING PREGNANCY
     Route: 064
  4. AZT [Concomitant]
     Indication: HIV INFECTION
     Route: 048
     Dates: start: 20100101
  5. LAMIVUDINE (EPIVIR HBV) [Concomitant]
     Indication: HIV INFECTION
     Route: 048
     Dates: start: 20100101

REACTIONS (4)
  - DRUG EXPOSURE DURING PREGNANCY [None]
  - DRUG INTOLERANCE [None]
  - GENE MUTATION [None]
  - VOMITING [None]
